FAERS Safety Report 25205639 (Version 1)
Quarter: 2025Q2

REPORT INFORMATION
  Report Type: Spontaneous
  Country: US (occurrence: US)
  Receive Date: 20250417
  Receipt Date: 20250417
  Transmission Date: 20250717
  Serious: Yes (Other)
  Sender: GRIFOLS
  Company Number: US-IGSA-BIG0032437

PATIENT
  Age: 42 Year
  Sex: Female

DRUGS (2)
  1. XEMBIFY [Suspect]
     Active Substance: HUMAN IMMUNOGLOBULIN G
     Indication: Immunoglobulins
     Dosage: 10 GRAM, Q.WK.
     Route: 058
     Dates: start: 202412
  2. LORATADINE [Concomitant]
     Active Substance: LORATADINE
     Indication: Premedication

REACTIONS (10)
  - Headache [Unknown]
  - Palpitations [Unknown]
  - Arthralgia [Unknown]
  - Joint swelling [Unknown]
  - Hyperthyroidism [Unknown]
  - Fatigue [Unknown]
  - Tachycardia [Unknown]
  - Myalgia [Unknown]
  - Injection site pain [Unknown]
  - Injection site discomfort [Unknown]

NARRATIVE: CASE EVENT DATE: 20250102
